FAERS Safety Report 4810467-2 (Version None)
Quarter: 2005Q4

REPORT INFORMATION
  Report Type: 
  Country: None (occurrence: None)
  Receive Date: 20051025
  Receipt Date: 20051025
  Transmission Date: 20060501
  Serious: Yes (Hospitalization)
  Sender: FDA-Public Use
  Company Number: None

PATIENT
  Age: 64 Year
  Sex: Male

DRUGS (12)
  1. POTASSIUM [Suspect]
     Dosage: 20MEQ PO BID
     Route: 048
  2. FOSINOPRIL SODIUM [Suspect]
     Dosage: 10MG PO QD
     Route: 048
  3. ACETAMINOPHEN [Concomitant]
  4. ALLOPURINOL [Concomitant]
  5. ASPIRIN [Concomitant]
  6. CALCIUM CARBONATE [Concomitant]
  7. CLOPIDOGREL BISULFATE [Concomitant]
  8. GEMFIBROZIL [Concomitant]
  9. HUMULIN R [Concomitant]
  10. NYSTATIN [Concomitant]
  11. SODIUM CHLORIDE [Concomitant]
  12. TRAMADOL [Concomitant]

REACTIONS (2)
  - HYPERKALAEMIA [None]
  - RENAL FAILURE ACUTE [None]
